FAERS Safety Report 19269338 (Version 1)
Quarter: 2021Q2

REPORT INFORMATION
  Report Type: Report from Study
  Country: FR (occurrence: FR)
  Receive Date: 20210517
  Receipt Date: 20210517
  Transmission Date: 20210717
  Serious: Yes (Hospitalization)
  Sender: FDA-Public Use
  Company Number: FR-BRISTOL-MYERS SQUIBB COMPANY-BMS-2021-047033

PATIENT
  Age: 61 Year
  Sex: Male
  Weight: 80 kg

DRUGS (4)
  1. CISPLATIN. [Suspect]
     Active Substance: CISPLATIN
     Indication: SQUAMOUS CELL CARCINOMA OF HEAD AND NECK
     Dosage: 200 MILLIGRAM, CYCLE 1 (D1)
     Route: 065
     Dates: start: 20210127
  2. CISPLATIN. [Suspect]
     Active Substance: CISPLATIN
     Dosage: CYCLE 2 (D22)
     Route: 065
     Dates: start: 20210311
  3. NIVOLUMAB [Suspect]
     Active Substance: NIVOLUMAB
     Dosage: 360 MILLIGRAM, CYCLE 1 (D1)
     Route: 065
     Dates: start: 20210127
  4. NIVOLUMAB [Suspect]
     Active Substance: NIVOLUMAB
     Indication: SQUAMOUS CELL CARCINOMA OF HEAD AND NECK
     Dosage: 240 MILLIGRAM, LEAD IN PHASE (D14 ? D10)
     Route: 065
     Dates: start: 20210113

REACTIONS (4)
  - General physical health deterioration [Unknown]
  - Dysuria [Unknown]
  - Asthenia [Unknown]
  - Diarrhoea [Unknown]

NARRATIVE: CASE EVENT DATE: 20210407
